FAERS Safety Report 8395506-7 (Version None)
Quarter: 2012Q2

REPORT INFORMATION
  Report Type: 
  Country: None (occurrence: None)
  Receive Date: 20120530
  Receipt Date: 20110519
  Transmission Date: 20120825
  Serious: No
  Sender: FDA-Public Use
  Company Number: US-GLAXOSMITHKLINE-A0928046A

PATIENT
  Age: 64 Year
  Sex: Female

DRUGS (4)
  1. BENICAR [Concomitant]
  2. ASPIRIN [Concomitant]
  3. VENTOLIN [Suspect]
     Indication: PNEUMONIA
     Dosage: 2PUFF AS REQUIRED
     Route: 055
     Dates: start: 20110517
  4. BIAXIN [Concomitant]

REACTIONS (1)
  - RASH [None]
